FAERS Safety Report 6512292-3 (Version None)
Quarter: 2009Q4

REPORT INFORMATION
  Report Type: 
  Country: None (occurrence: None)
  Receive Date: 20091222
  Receipt Date: 20090713
  Transmission Date: 20100525
  Serious: No
  Sender: FDA-Public Use
  Company Number: US-ASTRAZENECA-2009UW19663

PATIENT
  Age: 49 Year
  Sex: Female

DRUGS (4)
  1. CRESTOR [Suspect]
     Indication: BLOOD CHOLESTEROL INCREASED
     Route: 048
     Dates: start: 20090501
  2. THYROID MEDICATION [Concomitant]
  3. HORMONE TREATMENT CREAM [Concomitant]
  4. VITAMIN [Concomitant]

REACTIONS (2)
  - ARTHRALGIA [None]
  - BLOOD CHOLESTEROL ABNORMAL [None]
